FAERS Safety Report 4335984-3 (Version None)
Quarter: 2004Q2

REPORT INFORMATION
  Report Type: 
  Country: None (occurrence: None)
  Receive Date: 20040406
  Receipt Date: 20040324
  Transmission Date: 20050107
  Serious: Yes (Hospitalization)
  Sender: FDA-Public Use
  Company Number: 04P-167-0254693-00

PATIENT
  Age: 57 Year
  Sex: Female
  Weight: 109 kg

DRUGS (5)
  1. HUMIRA [Suspect]
     Indication: RHEUMATOID ARTHRITIS
     Dosage: 40 MG, 1 IN 2 WK, SUBCUTANEOUS
     Route: 058
     Dates: start: 20030727, end: 20031001
  2. FUROSEMIDE [Concomitant]
  3. ACETAMINOPHEN [Concomitant]
  4. PROPRANOLOL [Concomitant]
  5. TERBINAFINE HCL [Concomitant]

REACTIONS (2)
  - EPILEPSY [None]
  - LOSS OF CONSCIOUSNESS [None]
